FAERS Safety Report 5893051-1 (Version None)
Quarter: 2008Q3

REPORT INFORMATION
  Report Type: 
  Country: None (occurrence: None)
  Receive Date: 20080923
  Receipt Date: 20080211
  Transmission Date: 20090109
  Serious: No
  Sender: FDA-Public Use
  Company Number: US-ASTRAZENECA-2006UW24796

PATIENT
  Age: 13528 Day
  Sex: Female
  Weight: 95.5 kg

DRUGS (15)
  1. SEROQUEL [Suspect]
     Indication: SCHIZOPHRENIA, PARANOID TYPE
     Route: 048
     Dates: start: 20000110, end: 20060406
  2. GEODON [Concomitant]
     Dosage: 60 MG TO 80 MG
     Dates: start: 20050301, end: 20070501
  3. HALDOL [Concomitant]
     Dosage: 5 MG TO 10 MG
     Dates: start: 20020906, end: 20060310
  4. NAVANE [Concomitant]
     Dates: start: 19950301, end: 19960301
  5. RISPERDAL [Concomitant]
     Dosage: 2 MG TO 3 MG
     Dates: start: 19960717, end: 19990308
  6. RISPERDAL [Concomitant]
     Dosage: 2 MG TO 3 MG
     Dates: start: 20041028
  7. STELAZINE [Concomitant]
     Dates: start: 19990901
  8. ABILIFY [Concomitant]
     Dates: start: 20030501
  9. ZYPREXA [Concomitant]
     Dates: start: 19970724, end: 19970828
  10. ZYPREXA [Concomitant]
     Dates: start: 20030601
  11. ZOLOFT [Concomitant]
  12. TRAZODONE HCL [Concomitant]
  13. DEPAKOTE [Concomitant]
  14. WELLBUTRIN [Concomitant]
  15. CLONAZEPAM [Concomitant]

REACTIONS (2)
  - CARDIAC DISORDER [None]
  - DIABETES MELLITUS [None]
